FAERS Safety Report 21648418 (Version 2)
Quarter: 2023Q1

REPORT INFORMATION
  Report Type: Report from Study
  Country: US (occurrence: US)
  Receive Date: 20221128
  Receipt Date: 20230105
  Transmission Date: 20230418
  Serious: Yes (Death, Life-Threatening, Hospitalization, Other)
  Sender: FDA-Public Use
  Company Number: US-BAUSCH-BL-2022-026062

PATIENT
  Age: 52 Year
  Sex: Male

DRUGS (2)
  1. XIFAXAN [Suspect]
     Active Substance: RIFAXIMIN
     Indication: Hepatic encephalopathy
     Route: 048
     Dates: start: 2022, end: 2022
  2. XIFAXAN [Suspect]
     Active Substance: RIFAXIMIN
     Route: 065
     Dates: start: 20221205, end: 202212

REACTIONS (5)
  - Infection [Fatal]
  - Fluid retention [Recovering/Resolving]
  - Kidney infection [Unknown]
  - Localised infection [Unknown]
  - Abdominal pain [Recovering/Resolving]

NARRATIVE: CASE EVENT DATE: 20220101
